FAERS Safety Report 19952980 (Version 5)
Quarter: 2021Q4

REPORT INFORMATION
  Report Type: Spontaneous
  Country: JP (occurrence: JP)
  Receive Date: 20211014
  Receipt Date: 20211110
  Transmission Date: 20220303
  Serious: Yes (Other)
  Sender: FDA-Public Use
  Company Number: JP-BRISTOL-MYERS SQUIBB COMPANY-BMS-2021-103580

PATIENT
  Sex: Female

DRUGS (2)
  1. ORENCIA [Suspect]
     Active Substance: ABATACEPT
     Indication: Injury associated with device
     Dosage: 125 MG/1 ML
     Route: 058
     Dates: start: 20211001
  2. ORENCIA [Suspect]
     Active Substance: ABATACEPT
     Indication: Rheumatic disorder

REACTIONS (2)
  - Needle issue [Unknown]
  - Injury associated with device [Unknown]

NARRATIVE: CASE EVENT DATE: 20211001
